FAERS Safety Report 20151451 (Version 3)
Quarter: 2022Q3

REPORT INFORMATION
  Report Type: Spontaneous
  Country: MY (occurrence: MY)
  Receive Date: 20211206
  Receipt Date: 20220708
  Transmission Date: 20221027
  Serious: Yes (Other)
  Sender: FDA-Public Use
  Company Number: MY-002147023-NVSC2021MY267581

PATIENT
  Age: 70 Year
  Sex: Male

DRUGS (2)
  1. RANIBIZUMAB [Suspect]
     Active Substance: RANIBIZUMAB
     Indication: Macular degeneration
     Dosage: CONCENTRATION (10 MG/ML)
     Route: 065
     Dates: start: 2018
  2. RANIBIZUMAB [Suspect]
     Active Substance: RANIBIZUMAB
     Indication: Neovascular age-related macular degeneration
     Dosage: CONCENTRATION (10 MG/ML)
     Route: 065
     Dates: start: 20211112

REACTIONS (3)
  - Glaucoma [Unknown]
  - Drug ineffective [Unknown]
  - Retinal oedema [Unknown]
